FAERS Safety Report 6528999-8 (Version None)
Quarter: 2009Q4

REPORT INFORMATION
  Report Type: 
  Country: None (occurrence: None)
  Receive Date: 20091224
  Receipt Date: 20091210
  Transmission Date: 20100525
  Serious: Yes (Hospitalization)
  Sender: FDA-Public Use
  Company Number: 2009-00095

PATIENT
  Age: 68 Year
  Sex: Female

DRUGS (9)
  1. SIMVASTATIN [Suspect]
     Indication: DRUG USE FOR UNKNOWN INDICATION
     Dosage: 80 MG MANE
  2. CLARITHROMYCIN [Suspect]
     Indication: LOWER RESPIRATORY TRACT INFECTION
     Dosage: 500 MG, 2 IN 1 D
  3. PERINDOPRIL ERBUMINE [Concomitant]
  4. PERICYAZINE [Concomitant]
  5. QUETIAPINE FUMARATE [Concomitant]
  6. LITHIUM [Concomitant]
  7. ESCITALOPRAM [Concomitant]
  8. ASPIRIN [Concomitant]
  9. DIGOXIN [Concomitant]

REACTIONS (2)
  - DRUG INTERACTION [None]
  - NEUROLEPTIC MALIGNANT SYNDROME [None]
